FAERS Safety Report 20867423 (Version 1)
Quarter: 2022Q2

REPORT INFORMATION
  Report Type: Spontaneous
  Country: US (occurrence: None)
  Receive Date: 20220523
  Receipt Date: 20220523
  Transmission Date: 20220721
  Serious: No
  Sender: FDA-Public Use
  Company Number: None

PATIENT
  Age: 59 Year
  Sex: Female
  Weight: 68.4 kg

DRUGS (7)
  1. PAXLOVID [Suspect]
     Active Substance: NIRMATRELVIR\RITONAVIR
     Indication: COVID-19
     Dosage: OTHER QUANTITY : 3 TABLET(S);?FREQUENCY : TWICE A DAY;?
     Route: 048
     Dates: start: 20220510, end: 20220515
  2. ESTRADIOL [Concomitant]
     Active Substance: ESTRADIOL
  3. XOPENEX [Concomitant]
  4. NEXIUM [Concomitant]
     Active Substance: ESOMEPRAZOLE MAGNESIUM
  5. VITAMINS [Concomitant]
     Active Substance: VITAMINS
  6. L-Methyl Folate [Concomitant]
  7. Elderberry gummy [Concomitant]

REACTIONS (12)
  - Diarrhoea [None]
  - Dysgeusia [None]
  - Fatigue [None]
  - Chills [None]
  - Pyrexia [None]
  - Rhinorrhoea [None]
  - Nasal congestion [None]
  - Sneezing [None]
  - Oropharyngeal pain [None]
  - Headache [None]
  - SARS-CoV-2 test positive [None]
  - COVID-19 [None]

NARRATIVE: CASE EVENT DATE: 20220520
